FAERS Safety Report 4896439-0 (Version None)
Quarter: 2006Q1

REPORT INFORMATION
  Report Type: 
  Country: None (occurrence: None)
  Receive Date: 20060126
  Receipt Date: 20060113
  Transmission Date: 20060701
  Serious: Yes (Other)
  Sender: FDA-Public Use
  Company Number: 2006008691

PATIENT
  Age: 39 Year
  Sex: Female
  Weight: 67 kg

DRUGS (4)
  1. FLUCONAZOLE [Suspect]
     Indication: VULVOVAGINAL MYCOTIC INFECTION
     Dosage: 50 MG (50 MG, 1 IN 1 D), ORAL
     Route: 048
     Dates: start: 20051208, end: 20051217
  2. OMOCONAZOLE (OMOCONAZOLE) [Suspect]
     Indication: VULVOVAGINAL MYCOTIC INFECTION
     Dosage: 900 MG, 1 IN 1 WK, VAGINAL
     Route: 067
     Dates: start: 20051208, end: 20051222
  3. METRONIDAZOLE [Suspect]
     Indication: TRICHOMONIASIS
     Dosage: 500 MG (500 MG, 1 IN 1 D), VAGINAL
     Route: 067
     Dates: start: 20051208, end: 20051217
  4. METRONIDAZOLE [Suspect]
     Indication: TRICHOMONIASIS
     Dosage: 500 MG, (250 MG, 2 IN 1 D), ORAL
     Route: 048
     Dates: start: 20051208, end: 20051217

REACTIONS (2)
  - ABORTION SPONTANEOUS [None]
  - DRUG EXPOSURE DURING PREGNANCY [None]
